FAERS Safety Report 23530889 (Version 2)
Quarter: 2024Q4

REPORT INFORMATION
  Report Type: Spontaneous
  Country: AU (occurrence: AU)
  Receive Date: 20240216
  Receipt Date: 20241016
  Transmission Date: 20250114
  Serious: Yes (Death, Other)
  Sender: ALEXION PHARMACEUTICALS
  Company Number: 2024A038613

PATIENT
  Age: 83 Year

DRUGS (5)
  1. ONDEXXYA [Suspect]
     Active Substance: ANDEXANET ALFA
     Indication: Fall
     Dosage: 880 MILLIGRAM, SINGLE
  2. ONDEXXYA [Suspect]
     Active Substance: ANDEXANET ALFA
     Indication: Haemorrhage
     Dosage: 880 MILLIGRAM, SINGLE
  3. ONDEXXYA [Suspect]
     Active Substance: ANDEXANET ALFA
     Dosage: 880 MILLIGRAM, SINGLE
  4. ONDEXXYA [Suspect]
     Active Substance: ANDEXANET ALFA
     Dosage: 880 MILLIGRAM, SINGLE
  5. APIXABAN [Concomitant]
     Active Substance: APIXABAN
     Indication: Atrial fibrillation
     Dosage: 5 MILLIGRAM, BID

REACTIONS (1)
  - Death [Fatal]
